FAERS Safety Report 6150494-9 (Version None)
Quarter: 2009Q2

REPORT INFORMATION
  Report Type: 
  Country: None (occurrence: None)
  Receive Date: 20090409
  Receipt Date: 20090331
  Transmission Date: 20091009
  Serious: Yes (Hospitalization, Other)
  Sender: FDA-Public Use
  Company Number: DE-PURDUE-DEU_2009_0005163

PATIENT
  Sex: Male

DRUGS (1)
  1. OXYGESIC [Suspect]
     Indication: PAIN
     Dosage: 140 MG, SEE TEXT
     Route: 048
     Dates: start: 20030101

REACTIONS (2)
  - DRUG DETOXIFICATION [None]
  - INTENTIONAL DRUG MISUSE [None]
